FAERS Safety Report 25002399 (Version 1)
Quarter: 2025Q1

REPORT INFORMATION
  Report Type: Report from Study
  Country: CO (occurrence: CO)
  Receive Date: 20250224
  Receipt Date: 20250224
  Transmission Date: 20250408
  Serious: Yes (Death, Hospitalization, Other)
  Sender: UCB
  Company Number: CO-UCBSA-2025009787

PATIENT
  Age: 66 Year
  Sex: Male

DRUGS (6)
  1. ROTIGOTINE [Suspect]
     Active Substance: ROTIGOTINE
     Indication: Parkinson^s disease
     Dosage: 6 MILLIGRAM, ONCE DAILY (QD)
     Route: 062
     Dates: start: 20220430, end: 20220912
  2. ROTIGOTINE [Suspect]
     Active Substance: ROTIGOTINE
     Dosage: 8 MILLIGRAM, ONCE DAILY (QD)
     Route: 062
     Dates: start: 20220913, end: 20250116
  3. CARBIDOPA\LEVODOPA [Concomitant]
     Active Substance: CARBIDOPA\LEVODOPA
     Indication: Product used for unknown indication
  4. ENSURE [CARBOHYDRATES NOS;FATS NOS;MINERALS NOS;PROTEINS NOS;VITAMINS [Concomitant]
     Indication: Product used for unknown indication
  5. IRON [Concomitant]
     Active Substance: IRON
     Indication: Product used for unknown indication
  6. OMEPRAZOLE [Concomitant]
     Active Substance: OMEPRAZOLE
     Indication: Product used for unknown indication

REACTIONS (7)
  - Pneumonia [Fatal]
  - Wound infection [Unknown]
  - Eschar [Unknown]
  - Anaemia [Unknown]
  - Bedridden [Unknown]
  - Product dose omission issue [Unknown]
  - Off label use [Unknown]

NARRATIVE: CASE EVENT DATE: 20220430
